FAERS Safety Report 11617483 (Version 1)
Quarter: 2015Q4

REPORT INFORMATION
  Report Type: Spontaneous
  Country: US (occurrence: US)
  Receive Date: 20151009
  Receipt Date: 20151009
  Transmission Date: 20160304
  Serious: Yes (Other)
  Sender: FDA-Public Use
  Company Number: US-ASTRAZENECA-2015SE96022

PATIENT
  Sex: Male
  Weight: 52.2 kg

DRUGS (6)
  1. NORVASC [Concomitant]
     Active Substance: AMLODIPINE BESYLATE
  2. SYMBICORT [Suspect]
     Active Substance: BUDESONIDE\FORMOTEROL FUMARATE DIHYDRATE
     Indication: DYSPNOEA
     Dosage: 160/4.5 TO USE 5 PUFFS, TWICE A DAY
     Route: 055
  3. FAMCICLOVIR. [Concomitant]
     Active Substance: FAMCICLOVIR
  4. FLUCONAZOLE. [Concomitant]
     Active Substance: FLUCONAZOLE
  5. BACTRIM [Concomitant]
     Active Substance: SULFAMETHOXAZOLE\TRIMETHOPRIM
  6. AZITHROMYCIN [Concomitant]
     Active Substance: AZITHROMYCIN ANHYDROUS

REACTIONS (3)
  - Graft versus host disease [Unknown]
  - Dyspnoea [Unknown]
  - Incorrect dose administered [Unknown]
